FAERS Safety Report 6671045-6 (Version None)
Quarter: 2010Q2

REPORT INFORMATION
  Report Type: 
  Country: None (occurrence: None)
  Receive Date: 20100407
  Receipt Date: 20100329
  Transmission Date: 20101027
  Serious: Yes (Hospitalization)
  Sender: FDA-Public Use
  Company Number: CA-JNJFOC-20100400240

PATIENT
  Sex: Female
  Weight: 62 kg

DRUGS (10)
  1. REMICADE [Suspect]
     Indication: CROHN'S DISEASE
     Dosage: DOSE: 5 MG/KG
     Route: 042
  2. REMICADE [Suspect]
     Route: 042
  3. CIPRO [Concomitant]
     Dosage: TIMES 10 DAYS
  4. PERCOCET [Concomitant]
     Dosage: ONE EVERY 4 HOURS
  5. AMITRIPTYLINE HCL [Concomitant]
  6. DIAZEPAM [Concomitant]
  7. PALAFER [Concomitant]
  8. TRAMADOL [Concomitant]
  9. VITAMIN D [Concomitant]
     Dosage: DOSE: 1000
  10. VITAMIN B COMPLEX CAP [Concomitant]

REACTIONS (3)
  - ALCOHOL WITHDRAWAL SYNDROME [None]
  - BACTERIAL TEST POSITIVE [None]
  - PYELONEPHRITIS [None]
